FAERS Safety Report 8595754-7 (Version None)
Quarter: 2012Q3

REPORT INFORMATION
  Report Type: 
  Country: None (occurrence: None)
  Receive Date: 20120815
  Receipt Date: 20120809
  Transmission Date: 20120928
  Serious: Yes (Hospitalization, Other)
  Sender: FDA-Public Use
  Company Number: US-ELI_LILLY_AND_COMPANY-US201204002742

PATIENT
  Age: 58 Year
  Sex: Male
  Weight: 118.82 kg

DRUGS (6)
  1. AXIRON [Suspect]
     Indication: BLOOD TESTOSTERONE DECREASED
     Dosage: 60 MG, QD
     Dates: start: 20110913
  2. ANTIPSYCHOTICS [Concomitant]
  3. LOTRIL                             /00574902/ [Concomitant]
     Dosage: 5-10MG, QD
  4. M.V.I. [Concomitant]
  5. LIPITOR [Concomitant]
     Dosage: 40 MG, UNK
  6. LOZAL [Concomitant]
     Dosage: 1.25 MG, UNK

REACTIONS (2)
  - PULMONARY EMBOLISM [None]
  - DEEP VEIN THROMBOSIS [None]
